FAERS Safety Report 4275006-6 (Version None)
Quarter: 2004Q1

REPORT INFORMATION
  Report Type: 
  Country: None (occurrence: None)
  Receive Date: 20040116
  Receipt Date: 20040108
  Transmission Date: 20041129
  Serious: Yes (Life-Threatening)
  Sender: FDA-Public Use
  Company Number: MX-JNJFOC-20040101798

PATIENT
  Age: 7 Year
  Sex: Female
  Weight: 29 kg

DRUGS (5)
  1. REMICADE [Suspect]
     Indication: RHEUMATOID ARTHRITIS
     Dosage: 3 MG/KG, INTRAVENOUS
     Route: 042
     Dates: start: 20031210
  2. REMICADE [Suspect]
     Indication: RHEUMATOID ARTHRITIS
     Dosage: 3 MG/KG, INTRAVENOUS
     Route: 042
     Dates: start: 20040107
  3. DEFALZACORT (DEFLAZACORT) [Concomitant]
  4. FOLIC ACID [Concomitant]
  5. METHOTREXATE [Concomitant]

REACTIONS (5)
  - CHILLS [None]
  - NAUSEA [None]
  - PRURITUS [None]
  - TACHYCARDIA [None]
  - VOMITING [None]
